FAERS Safety Report 12936533 (Version 6)
Quarter: 2024Q2

REPORT INFORMATION
  Report Type: Spontaneous
  Country: PT (occurrence: PT)
  Receive Date: 20161114
  Receipt Date: 20240522
  Transmission Date: 20240716
  Serious: Yes (Disabling, Other)
  Sender: FDA-Public Use
  Company Number: PT-009507513-1608PRT010782

PATIENT
  Age: 58 Year
  Sex: Female

DRUGS (2)
  1. KEYTRUDA [Suspect]
     Active Substance: PEMBROLIZUMAB
     Indication: Malignant melanoma stage III
     Dosage: 2MG/KG EVERY 3 WEEKS
     Route: 042
  2. KEYTRUDA [Suspect]
     Active Substance: PEMBROLIZUMAB
     Dosage: 2MG/KG EVERY 3 WEEKS
     Route: 042

REACTIONS (11)
  - Multiple sclerosis [Recovering/Resolving]
  - Gait disturbance [Unknown]
  - Neurological symptom [Unknown]
  - General physical health deterioration [Unknown]
  - Demyelination [Recovering/Resolving]
  - Paraesthesia [Unknown]
  - Autoimmune hypothyroidism [Recovered/Resolved]
  - Asthenia [Unknown]
  - Asthenia [Unknown]
  - Neuropathy peripheral [Unknown]
  - Glycosylated haemoglobin increased [Recovered/Resolved]
